FAERS Safety Report 21069535 (Version 1)
Quarter: 2022Q3

REPORT INFORMATION
  Report Type: Report from Study
  Country: US (occurrence: None)
  Receive Date: 20220712
  Receipt Date: 20220712
  Transmission Date: 20221027
  Serious: Yes (Other)
  Sender: FDA-Public Use
  Company Number: US-ROCHE-3131939

PATIENT
  Age: 57 Year
  Sex: Female
  Weight: 113.9 kg

DRUGS (6)
  1. TOBEMSTOMIG [Suspect]
     Active Substance: TOBEMSTOMIG
     Indication: Hepatic cancer
     Route: 042
     Dates: start: 20220404
  2. BEVACIZUMAB [Suspect]
     Active Substance: BEVACIZUMAB
     Indication: Hepatic cancer
     Route: 042
     Dates: start: 20220404
  3. CALCIUM CARBONATE [Concomitant]
     Active Substance: CALCIUM CARBONATE
     Route: 048
     Dates: start: 20200721
  4. MINERALS\VITAMINS [Concomitant]
     Active Substance: MINERALS\VITAMINS
     Dosage: ONE A DAY WOMENS MULTIVITAMINS
     Route: 048
     Dates: start: 20211121
  5. CLOBETASOL [Concomitant]
     Active Substance: CLOBETASOL
     Indication: Rash
     Dosage: CLOBETASOL 0.05% SHAMPOO
     Route: 061
     Dates: start: 20220516
  6. TYLENOL [Concomitant]
     Active Substance: ACETAMINOPHEN
     Indication: Headache
     Route: 048
     Dates: start: 20220628, end: 20220628

REACTIONS (1)
  - Visual impairment [Not Recovered/Not Resolved]

NARRATIVE: CASE EVENT DATE: 20220405
